FAERS Safety Report 4800971-5 (Version None)
Quarter: 2005Q4

REPORT INFORMATION
  Report Type: 
  Country: None (occurrence: None)
  Receive Date: 20051017
  Receipt Date: 20051004
  Transmission Date: 20060501
  Serious: Yes (Other)
  Sender: FDA-Public Use
  Company Number: US-MERCK-0510USA03804

PATIENT
  Sex: Male

DRUGS (3)
  1. VIOXX [Suspect]
     Route: 048
     Dates: start: 20001201, end: 20030601
  2. BEXTRA [Suspect]
     Route: 065
     Dates: start: 20001201, end: 20030601
  3. BEXTRA [Suspect]
     Route: 065
     Dates: start: 20001201, end: 20030601

REACTIONS (1)
  - CARDIOVASCULAR DISORDER [None]
